FAERS Safety Report 13899100 (Version 1)
Quarter: 2017Q3

REPORT INFORMATION
  Report Type: Spontaneous
  Country: US (occurrence: US)
  Receive Date: 20170823
  Receipt Date: 20170823
  Transmission Date: 20171127
  Serious: Yes (Other)
  Sender: FDA-Public Use
  Company Number: None

PATIENT
  Age: 46 Year
  Sex: Female

DRUGS (1)
  1. LABETALOL 200MGS [Suspect]
     Active Substance: LABETALOL HYDROCHLORIDE

REACTIONS (2)
  - Headache [None]
  - Blood pressure increased [None]
